FAERS Safety Report 17363457 (Version 1)
Quarter: 2020Q1

REPORT INFORMATION
  Report Type: Spontaneous
  Country: US (occurrence: US)
  Receive Date: 20200203
  Receipt Date: 20200203
  Transmission Date: 20200409
  Serious: No
  Sender: FDA-Public Use
  Company Number: US-009507513-2002USA000593

PATIENT
  Sex: Female

DRUGS (1)
  1. KEYTRUDA [Suspect]
     Active Substance: PEMBROLIZUMAB
     Indication: ENDOMETRIAL CANCER STAGE IV
     Dosage: UNK
     Route: 042
     Dates: start: 2018

REACTIONS (10)
  - White blood cell count increased [Unknown]
  - Colitis [Unknown]
  - Red blood cell count decreased [Unknown]
  - Anaemia [Unknown]
  - Plasma cell disorder [Unknown]
  - Drug ineffective for unapproved indication [Unknown]
  - Constipation [Unknown]
  - Fatigue [Unknown]
  - Pruritus [Unknown]
  - Anal incontinence [Unknown]
